FAERS Safety Report 5659430-2 (Version None)
Quarter: 2008Q1

REPORT INFORMATION
  Report Type: 
  Country: None (occurrence: None)
  Receive Date: 20080311
  Receipt Date: 20080220
  Transmission Date: 20080703
  Serious: Yes (Hospitalization)
  Sender: FDA-Public Use
  Company Number: IT-RANBAXY-2008RR-13208

PATIENT

DRUGS (1)
  1. ZIDOVUDINE TABLETS [Suspect]
     Indication: PROPHYLAXIS
     Dosage: 20 MG/KG, QID
     Route: 048

REACTIONS (2)
  - DRUG TOXICITY [None]
  - OVERDOSE [None]
